FAERS Safety Report 7280311-5 (Version None)
Quarter: 2011Q1

REPORT INFORMATION
  Report Type: 
  Country: None (occurrence: None)
  Receive Date: 20110208
  Receipt Date: 20110201
  Transmission Date: 20110831
  Serious: Yes (Death)
  Sender: FDA-Public Use
  Company Number: CL-GENZYME-CLOF-1001420

PATIENT
  Sex: Male
  Weight: 77.4 kg

DRUGS (1)
  1. CLOLAR [Suspect]
     Indication: ACUTE LYMPHOCYTIC LEUKAEMIA
     Dosage: 40 MG/M2, QDX5
     Route: 042
     Dates: start: 20101026, end: 20101030

REACTIONS (1)
  - ACUTE LYMPHOCYTIC LEUKAEMIA [None]
